FAERS Safety Report 4401849-1 (Version None)
Quarter: 2004Q3

REPORT INFORMATION
  Report Type: 
  Country: None (occurrence: None)
  Receive Date: 20040714
  Receipt Date: 20040629
  Transmission Date: 20050211
  Serious: Yes (Hospitalization)
  Sender: FDA-Public Use
  Company Number: MPS1-10247

PATIENT
  Age: 6 Year
  Sex: Male
  Weight: 16.1 kg

DRUGS (1)
  1. ALDURAZYME [Suspect]
     Indication: MUCOPOLYSACCHARIDOSIS IH
     Dosage: 8.7 MG QWK IV
     Route: 042
     Dates: start: 20030624

REACTIONS (4)
  - DIARRHOEA [None]
  - OXYGEN SATURATION DECREASED [None]
  - PNEUMONIA [None]
  - RESPIRATORY DISTRESS [None]
